FAERS Safety Report 21381954 (Version 13)
Quarter: 2023Q2

REPORT INFORMATION
  Report Type: Report from Study
  Country: BR (occurrence: BR)
  Receive Date: 20220927
  Receipt Date: 20230620
  Transmission Date: 20230722
  Serious: Yes (Life-Threatening)
  Sender: FDA-Public Use
  Company Number: BR-AMGEN-BRACT2022165232

PATIENT
  Age: 6 Year
  Sex: Female

DRUGS (37)
  1. CARFILZOMIB [Suspect]
     Active Substance: CARFILZOMIB
     Indication: Acute lymphocytic leukaemia
     Dosage: 45.36 MILLIGRAM
     Route: 042
     Dates: start: 20220824
  2. DEXAMETHASONE [Suspect]
     Active Substance: DEXAMETHASONE
     Indication: Acute lymphocytic leukaemia
     Dosage: 2.43-2.5 MILLIGRAM
     Route: 065
     Dates: start: 20220824
  3. PEG/L-ASPARAGINASE [Suspect]
     Active Substance: PEGASPARGASE
     Indication: Acute lymphocytic leukaemia
     Dosage: 2050 INTERNATIONAL UNIT
     Route: 048
     Dates: start: 20220827
  4. VINCRISTINE [Concomitant]
     Active Substance: VINCRISTINE
     Dosage: 1.22-1.23 MILLIGRAM
     Dates: start: 20220824, end: 20220914
  5. DAUNORUBICIN [Concomitant]
     Active Substance: DAUNORUBICIN
     Dosage: 20.25-20.5 MILLIGRAM
     Dates: start: 20220824, end: 20220914
  6. CYTARABINE [Concomitant]
     Active Substance: CYTARABINE
     Dosage: 30 MILLIGRAM
     Dates: start: 20220823, end: 20220823
  7. HYDROCORTISONE [Concomitant]
     Active Substance: HYDROCORTISONE
     Dosage: 1.6-100 MILLIGRAM
     Route: 042
     Dates: start: 20220817, end: 20220823
  8. METHOTREXATE [Concomitant]
     Active Substance: METHOTREXATE
     Dosage: 12 MILLIGRAM
     Dates: start: 20220823, end: 20220906
  9. MEROPENEM [Concomitant]
     Active Substance: MEROPENEM
     Dosage: UNK
     Route: 048
     Dates: start: 20220825, end: 20220926
  10. ALLOPURINOL [Concomitant]
     Active Substance: ALLOPURINOL
     Dosage: 100 MILLIGRAM
     Route: 048
     Dates: start: 20220819, end: 20220831
  11. AMLODIPINE [Concomitant]
     Active Substance: AMLODIPINE BESYLATE
     Dosage: UNK
     Dates: start: 20220819, end: 20220920
  12. CHLORPROMAZINE [Concomitant]
     Active Substance: CHLORPROMAZINE
     Dosage: 7 MILLIGRAM
     Route: 042
     Dates: start: 20220828
  13. DEXCHLORPHENIRAMINE [Concomitant]
     Active Substance: DEXCHLORPHENIRAMINE
     Dosage: 1 MILLIGRAM
     Route: 048
     Dates: start: 20220817
  14. DIPHENHYDRAMINE [Concomitant]
     Active Substance: DIPHENHYDRAMINE
     Dosage: 20 MILLIGRAM
     Route: 042
     Dates: start: 20220817, end: 20221001
  15. DIMENHYDRINATE [Concomitant]
     Active Substance: DIMENHYDRINATE
     Dosage: 20 MILLIGRAM
     Route: 048
     Dates: start: 20220817, end: 20221212
  16. DIPYRONE [Concomitant]
     Active Substance: DIPYRONE
     Dosage: 500 MILLIGRAM
     Route: 040
     Dates: start: 20220817, end: 20221212
  17. HYDRALAZINE [Concomitant]
     Active Substance: HYDRALAZINE HYDROCHLORIDE
     Dosage: 4 MILLIGRAM
     Route: 040
     Dates: start: 20220824, end: 20221217
  18. MICAFUNGIN [Concomitant]
     Active Substance: MICAFUNGIN SODIUM
     Dosage: UNK
     Dates: start: 20220825, end: 20220920
  19. CLONAZEPAM [Concomitant]
     Active Substance: CLONAZEPAM
     Dosage: UNK
     Route: 048
     Dates: start: 20220818, end: 20230109
  20. OMEPRAZOLE [Concomitant]
     Active Substance: OMEPRAZOLE
     Dosage: 20 MILLIGRAM
     Route: 042
     Dates: start: 20220822
  21. ONDANSETRON [Concomitant]
     Active Substance: ONDANSETRON
     Dosage: 3 MILLIGRAM
     Route: 042
     Dates: start: 20220822
  22. ACETAMINOPHEN [Concomitant]
     Active Substance: ACETAMINOPHEN
     Dosage: 200 MILLIGRAM
     Route: 048
     Dates: start: 20220817
  23. ALBUTEROL [Concomitant]
     Active Substance: ALBUTEROL
     Dosage: UNK
     Route: 048
     Dates: start: 20220802, end: 20220907
  24. BACTRIM [Concomitant]
     Active Substance: SULFAMETHOXAZOLE\TRIMETHOPRIM
     Dosage: 200 MILLIGRAM
     Dates: start: 20220818
  25. MAGNESIUM SULFATE [Concomitant]
     Active Substance: MAGNESIUM SULFATE
     Dosage: 0.5 MILLIGRAM
     Route: 042
     Dates: start: 20220831, end: 20220831
  26. SODIUM BICARBONATE [Concomitant]
     Active Substance: SODIUM BICARBONATE
     Dosage: 45 MILLILITER
     Route: 042
     Dates: start: 20220831, end: 20220904
  27. CEFEPIME [Concomitant]
     Active Substance: CEFEPIME HYDROCHLORIDE
     Dosage: 1 GRAM
     Route: 040
     Dates: start: 20220821, end: 20220825
  28. METHADONE [Concomitant]
     Active Substance: METHADONE HYDROCHLORIDE
     Dosage: 2.5 MILLIGRAM
     Route: 048
     Dates: start: 20220821, end: 20220823
  29. HYDROXYUREA [Concomitant]
     Active Substance: HYDROXYUREA
     Dosage: 100 MILLIGRAM
     Route: 042
     Dates: start: 20220818, end: 20220824
  30. VANCOMYCIN [Concomitant]
     Active Substance: VANCOMYCIN
     Dosage: UNK
     Route: 042
     Dates: start: 20220818, end: 20220930
  31. FUROSEMIDE [Concomitant]
     Active Substance: FUROSEMIDE
     Dosage: 5 MILLIGRAM
     Route: 042
     Dates: start: 20220819
  32. METHYLPREDNISOLONE [Concomitant]
     Active Substance: METHYLPREDNISOLONE
     Dosage: 9 MILLIGRAM
     Route: 042
     Dates: start: 20220819, end: 20220822
  33. VORICONAZOLE [Concomitant]
     Active Substance: VORICONAZOLE
     Dosage: 10 UNK
     Route: 042
     Dates: start: 20220920, end: 20220922
  34. SCOPOLAMINE [Concomitant]
     Active Substance: SCOPOLAMINE
     Dosage: 15 MILLIGRAM
     Route: 040
     Dates: start: 20220911, end: 20230109
  35. ACETAMINOPHEN [Concomitant]
     Active Substance: ACETAMINOPHEN
     Dosage: 200 MILLIGRAM
     Route: 048
     Dates: start: 20220812, end: 20230109
  36. SODIUM CHLORIDE [Concomitant]
     Active Substance: SODIUM CHLORIDE
     Dosage: 100 MILLILITER
     Route: 042
     Dates: start: 20220824, end: 20220824
  37. Dextrose in sodium chloride [Concomitant]
     Dosage: 100 MILLILITER
     Route: 042
     Dates: start: 20220831, end: 20220908

REACTIONS (1)
  - Fungaemia [Not Recovered/Not Resolved]

NARRATIVE: CASE EVENT DATE: 20220921
